FAERS Safety Report 7335231-4 (Version None)
Quarter: 2011Q1

REPORT INFORMATION
  Report Type: 
  Country: None (occurrence: None)
  Receive Date: 20110307
  Receipt Date: 20110302
  Transmission Date: 20110831
  Serious: No
  Sender: FDA-Public Use
  Company Number: US-PFIZER INC-2011046395

PATIENT
  Sex: Male

DRUGS (5)
  1. LEVOTHYROXINE [Concomitant]
     Dosage: UNK
  2. GUANFACINE [Concomitant]
     Dosage: UNK
  3. ZYVOX [Suspect]
     Indication: PATHOGEN RESISTANCE
     Dosage: UNK, 2X/DAY
     Route: 048
     Dates: start: 20110228
  4. TRILEPTAL [Concomitant]
     Dosage: UNK
  5. KLONOPIN [Concomitant]
     Dosage: UNK

REACTIONS (1)
  - PRODUCT TASTE ABNORMAL [None]
